FAERS Safety Report 10495617 (Version 1)
Quarter: 2014Q3

REPORT INFORMATION
  Report Type: Spontaneous
  Country: US (occurrence: None)
  Receive Date: 20140815
  Receipt Date: 20140815
  Transmission Date: 20150326
  Serious: Yes (Hospitalization, Other)
  Sender: FDA-Public Use
  Company Number: ADR-2014-00443

PATIENT
  Age: 42 Year
  Sex: Female

DRUGS (1)
  1. BACLOFEN. [Suspect]
     Active Substance: BACLOFEN
     Indication: MUSCLE SPASTICITY

REACTIONS (9)
  - Hallucination [None]
  - Pruritus [None]
  - Hyperhidrosis [None]
  - Mental status changes [None]
  - Agitation [None]
  - Drug withdrawal syndrome [None]
  - Muscle spasticity [None]
  - Tremor [None]
  - Underdose [None]

NARRATIVE: CASE EVENT DATE: 20140313
